FAERS Safety Report 19619422 (Version 1)
Quarter: 2021Q3

REPORT INFORMATION
  Report Type: Spontaneous
  Country: CN (occurrence: CN)
  Receive Date: 20210727
  Receipt Date: 20210727
  Transmission Date: 20211014
  Serious: Yes (Other)
  Sender: FDA-Public Use
  Company Number: CN-BAXTER-2021BAX021902

PATIENT
  Age: 42 Year
  Sex: Female
  Weight: 45 kg

DRUGS (6)
  1. ENDOXAN [Suspect]
     Active Substance: CYCLOPHOSPHAMIDE
     Indication: BREAST CANCER FEMALE
     Dosage: CYCLOPHOSPHAMIDE 0.74 G + 0.9% SODIUM CHLORIDE 100 ML
     Route: 041
     Dates: start: 20210616, end: 20210616
  2. 0.9% SODIUM CHLORIDE INJECTION [Suspect]
     Active Substance: SODIUM CHLORIDE
     Indication: MEDICATION DILUTION
     Dosage: 0.9% SODIUM CHLORIDE 100 ML + CYCLOPHOSPHAMIDE 0.74 G
     Route: 041
     Dates: start: 20210616, end: 20210616
  3. 5% GLUCOSE  INJECTION [Suspect]
     Active Substance: DEXTROSE
     Indication: MEDICATION DILUTION
     Dosage: 5% GLUCOSE 250 ML + PIRARUBICIN HYDROCHLORIDE 62 MG
     Route: 041
     Dates: start: 20210616, end: 20210616
  4. PIRARUBICIN HYDROCHLORIDE [Suspect]
     Active Substance: PIRARUBICIN HYDROCHLORIDE
     Indication: BREAST CANCER FEMALE
     Dosage: PIRARUBICIN HYDROCHLORIDE 62 MG + 5% GLUCOSE 250 ML
     Route: 041
     Dates: start: 20210616, end: 20210616
  5. PIRARUBICIN HYDROCHLORIDE [Suspect]
     Active Substance: PIRARUBICIN HYDROCHLORIDE
     Indication: METASTASES TO LUNG
     Dosage: PRIOR DRUG
     Route: 065
  6. ENDOXAN [Suspect]
     Active Substance: CYCLOPHOSPHAMIDE
     Indication: METASTASES TO LUNG
     Dosage: PRIOR DRUG
     Route: 065

REACTIONS (4)
  - White blood cell count decreased [Recovered/Resolved]
  - Neutrophil count decreased [Recovered/Resolved]
  - White blood cell count decreased [Unknown]
  - Neutrophil count decreased [Unknown]

NARRATIVE: CASE EVENT DATE: 20210707
